FAERS Safety Report 8916025 (Version 1)
Quarter: 2012Q4

REPORT INFORMATION
  Report Type: Report from Study
  Country: VE (occurrence: VE)
  Receive Date: 20121119
  Receipt Date: 20121119
  Transmission Date: 20130627
  Serious: Yes (Hospitalization)
  Sender: FDA-Public Use
  Company Number: VE-ABBOTT-12P-178-1008478-00

PATIENT
  Age: 52 Year
  Sex: Female

DRUGS (3)
  1. HUMIRA [Suspect]
     Indication: RHEUMATOID ARTHRITIS
     Route: 058
     Dates: start: 2007, end: 201207
  2. FLOTAC [Concomitant]
     Indication: ANKYLOSING SPONDYLITIS
     Dosage: vo
  3. METHOTREXATE [Concomitant]
     Indication: ANKYLOSING SPONDYLITIS
     Dosage: vo

REACTIONS (2)
  - Ovarian cyst [Recovering/Resolving]
  - Hysterectomy [Recovering/Resolving]
